FAERS Safety Report 19450727 (Version 1)
Quarter: 2021Q2

REPORT INFORMATION
  Report Type: Spontaneous
  Country: DE (occurrence: DE)
  Receive Date: 20210622
  Receipt Date: 20210622
  Transmission Date: 20210717
  Serious: Yes (Other)
  Sender: FDA-Public Use
  Company Number: DE-ASTRAZENECA-2021A532920

PATIENT
  Age: 59 Year
  Sex: Male

DRUGS (1)
  1. DURVALUMAB. [Suspect]
     Active Substance: DURVALUMAB
     Route: 042
     Dates: start: 201811

REACTIONS (4)
  - Malignant neoplasm progression [Unknown]
  - Metastases to lymph nodes [Unknown]
  - Atelectasis [Unknown]
  - Pulmonary artery stenosis [Unknown]

NARRATIVE: CASE EVENT DATE: 201901
